FAERS Safety Report 8540063-5 (Version None)
Quarter: 2012Q2

REPORT INFORMATION
  Report Type: 
  Country: None (occurrence: None)
  Receive Date: 20120412
  Receipt Date: 20090428
  Transmission Date: 20120825
  Serious: Yes (Other)
  Sender: FDA-Public Use
  Company Number: PHEH2009US04183

PATIENT
  Sex: Female

DRUGS (4)
  1. AREDIA [Suspect]
     Indication: OSTEOPOROSIS
  2. AREDIA [Suspect]
     Indication: OSTEITIS DEFORMANS
  3. FOSAMAX [Suspect]
     Indication: OSTEOPOROSIS
  4. FOSAMAX [Suspect]
     Indication: OSTEITIS DEFORMANS

REACTIONS (8)
  - JAW DISORDER [None]
  - INJURY [None]
  - EMOTIONAL DISTRESS [None]
  - CONDITION AGGRAVATED [None]
  - PAIN [None]
  - ANXIETY [None]
  - ANHEDONIA [None]
  - OSTEONECROSIS [None]
